FAERS Safety Report 8998946 (Version 1)
Quarter: 2013Q1

REPORT INFORMATION
  Report Type: Spontaneous
  Country: US (occurrence: US)
  Receive Date: 20130103
  Receipt Date: 20130103
  Transmission Date: 20140127
  Serious: No
  Sender: FDA-Public Use
  Company Number: US-PFIZER INC-2012329846

PATIENT
  Sex: 0

DRUGS (1)
  1. ARTHROTEC [Suspect]
     Indication: ARTHRITIS
     Dosage: 75 MG, 2X/DAY

REACTIONS (1)
  - Bone marrow oedema [Unknown]
